FAERS Safety Report 7000784-2 (Version None)
Quarter: 2010Q3

REPORT INFORMATION
  Report Type: 
  Country: None (occurrence: None)
  Receive Date: 20100920
  Receipt Date: 20090717
  Transmission Date: 20110219
  Serious: Yes (Other)
  Sender: FDA-Public Use
  Company Number: US-ASTRAZENECA-2007UW19268

PATIENT
  Age: 496 Month
  Sex: Male
  Weight: 142.9 kg

DRUGS (28)
  1. SEROQUEL [Suspect]
     Indication: SLEEP DISORDER
     Route: 048
     Dates: start: 20031114, end: 20040101
  2. SEROQUEL [Suspect]
     Dosage: 25 MG TO 100 MG
     Route: 048
     Dates: start: 20040206
  3. RISPERDAL [Concomitant]
     Indication: SLEEP DISORDER
     Dosage: 0.5 MG - 1 MG
     Dates: start: 20030801, end: 20031101
  4. PROPRANOLOL [Concomitant]
     Dosage: 10 - 20 MG DISPENSED
     Dates: start: 20050726
  5. METFORMIN [Concomitant]
     Dosage: 500 MG QD, 1000 MG BID
     Dates: start: 20050726
  6. FLUOXETINE [Concomitant]
     Dosage: 20 MG - 40 MG DISPENSED
     Dates: start: 20030930
  7. WELLBUTRIN [Concomitant]
     Dosage: 100, 150 M DISPENSED
     Dates: start: 20030821
  8. HYDROCODONE [Concomitant]
     Dates: start: 20031201
  9. LAMICTAL [Concomitant]
     Dosage: 25 MG - 100 MG DISPENSED
     Dates: start: 20040206
  10. OXYCODONE HCL [Concomitant]
     Dates: start: 20000609
  11. AMBIEN [Concomitant]
     Dates: start: 20040330
  12. PROVIGIL [Concomitant]
     Dates: start: 20040330
  13. ZYPREXA [Concomitant]
     Dates: start: 20040625
  14. LORAZEPAM [Concomitant]
     Dosage: 0.5 MG - 1 MG DISPENSED
     Dates: start: 20030829
  15. ALPRAZOLAM [Concomitant]
     Dosage: 0.25 MG, 0.5 MG AND 1 MG DISPENSED
     Dates: start: 20040908
  16. NORTRIPTYLINE HCL [Concomitant]
     Dates: start: 20040914
  17. ABILIFY [Concomitant]
     Dosage: 5 MG - 10 MG DISPENSED
     Dates: start: 20040914
  18. NARDIL [Concomitant]
     Dates: start: 20050112
  19. CLONAZEPAM [Concomitant]
     Dates: start: 20051104
  20. LYRICA [Concomitant]
     Dates: start: 20051208
  21. MORPHINE SULFATE [Concomitant]
     Dates: start: 20050112
  22. TRAZODONE HCL [Concomitant]
     Dosage: 50 MG AND 150 MG DISPENSED
     Dates: start: 20030617
  23. CLONIDINE [Concomitant]
     Dosage: 0.1 M DISPENSED
     Dates: start: 20070307
  24. FUROSEMIDE [Concomitant]
     Dates: start: 20070913
  25. BYETTA [Concomitant]
     Dosage: 5 MCG / 0.02, 10 MCG / 0.042
     Dates: start: 20071206
  26. PRANDIN [Concomitant]
     Dates: start: 20080103
  27. ZETIA [Concomitant]
     Dates: start: 20080103
  28. DEXAMETHASONE [Concomitant]
     Dates: start: 20080118

REACTIONS (4)
  - ERECTILE DYSFUNCTION [None]
  - HYPOGLYCAEMIA [None]
  - PANCREATITIS ACUTE [None]
  - TYPE 2 DIABETES MELLITUS [None]
